FAERS Safety Report 6662221-7 (Version None)
Quarter: 2010Q1

REPORT INFORMATION
  Report Type: 
  Country: None (occurrence: None)
  Receive Date: 20100331
  Receipt Date: 20100323
  Transmission Date: 20100710
  Serious: Yes (Death)
  Sender: FDA-Public Use
  Company Number: GXKR2010GB03450

PATIENT
  Age: 10 Year
  Sex: Female

DRUGS (2)
  1. SALBUTAMOL (NGX) [Suspect]
     Indication: ASTHMA
     Dosage: 2 DF, TID
  2. FLUTICASONE PROPIONATE W/SALMETEROL XINAFOATE [Suspect]
     Indication: ASTHMA
     Dosage: 2 DF, BID

REACTIONS (2)
  - ASTHMA [None]
  - OVERDOSE [None]
